FAERS Safety Report 13989099 (Version 1)
Quarter: 2017Q3

REPORT INFORMATION
  Report Type: Spontaneous
  Country: US (occurrence: US)
  Receive Date: 20170920
  Receipt Date: 20170920
  Transmission Date: 20171128
  Serious: No
  Sender: FDA-Public Use
  Company Number: US-ROCHE-1990201

PATIENT
  Age: 60 Year
  Sex: Male
  Weight: 72.64 kg

DRUGS (3)
  1. TRAMADOL. [Concomitant]
     Active Substance: TRAMADOL
     Route: 065
     Dates: start: 2017
  2. OCREVUS [Suspect]
     Active Substance: OCRELIZUMAB
     Indication: MULTIPLE SCLEROSIS
     Dosage: 60MG BROKEN IN TWO SESSION; THAN EVERY 6 MONTHS
     Route: 042
     Dates: start: 20170901
  3. LYRICA [Concomitant]
     Active Substance: PREGABALIN
     Indication: NERVE INJURY
     Route: 065
     Dates: start: 2013

REACTIONS (4)
  - Somnolence [Not Recovered/Not Resolved]
  - Fatigue [Not Recovered/Not Resolved]
  - Herpes virus infection [Recovered/Resolved]
  - Palmar erythema [Recovered/Resolved]

NARRATIVE: CASE EVENT DATE: 20170903
